FAERS Safety Report 6545957-8 (Version None)
Quarter: 2010Q1

REPORT INFORMATION
  Report Type: 
  Country: None (occurrence: None)
  Receive Date: 20100112
  Receipt Date: 20100112
  Transmission Date: 20100710
  Serious: No
  Sender: FDA-Public Use
  Company Number: None

PATIENT
  Age: 10 Year
  Sex: Female
  Weight: 48.4 kg

DRUGS (1)
  1. SUPPRELIN [Suspect]
     Indication: HORMONE REPLACEMENT THERAPY
     Dates: start: 20090102, end: 20090108

REACTIONS (2)
  - COMPLICATION OF DEVICE REMOVAL [None]
  - DEVICE BREAKAGE [None]
